FAERS Safety Report 5035067-3 (Version None)
Quarter: 2006Q2

REPORT INFORMATION
  Report Type: 
  Country: None (occurrence: None)
  Receive Date: 20060519
  Receipt Date: 20060207
  Transmission Date: 20061013
  Serious: No
  Sender: FDA-Public Use
  Company Number: TPA2005A01518

PATIENT
  Age: 54 Year
  Sex: Female
  Weight: 90.7194 kg

DRUGS (9)
  1. ROZEREM [Suspect]
     Indication: SLEEP DISORDER
     Dosage: SEE IMAGE
     Route: 048
     Dates: start: 20051027, end: 20051110
  2. ROZEREM [Suspect]
     Indication: SLEEP DISORDER
     Dosage: SEE IMAGE
     Route: 048
     Dates: end: 20051116
  3. ROZEREM [Suspect]
     Indication: SLEEP DISORDER
     Dosage: SEE IMAGE
     Route: 048
     Dates: start: 20051110
  4. ROZEREM [Suspect]
     Indication: SLEEP DISORDER
     Dosage: SEE IMAGE
     Route: 048
     Dates: start: 20051116
  5. PRINIVIL [Concomitant]
  6. ALDACTONE [Concomitant]
  7. EFFEXOR [Concomitant]
  8. ULTRAM [Concomitant]
  9. GUAIFENESIN (GUAIFENESIN) [Concomitant]

REACTIONS (4)
  - DRUG INEFFECTIVE [None]
  - INSOMNIA [None]
  - INTENTIONAL OVERDOSE [None]
  - MIDDLE INSOMNIA [None]
